FAERS Safety Report 12177092 (Version 2)
Quarter: 2016Q1

REPORT INFORMATION
  Report Type: Report from Study
  Country: US (occurrence: US)
  Receive Date: 20160314
  Receipt Date: 20160317
  Transmission Date: 20160526
  Serious: Yes (Hospitalization)
  Sender: FDA-Public Use
  Company Number: US-GILEAD-2016-0202974

PATIENT
  Age: 63 Year
  Sex: Male

DRUGS (2)
  1. SOFOSBUVIR [Suspect]
     Active Substance: SOFOSBUVIR
     Indication: CHRONIC HEPATITIS C
     Dosage: 400 MG, QD
     Route: 048
     Dates: end: 20151231
  2. RIBAVIRIN. [Concomitant]
     Active Substance: RIBAVIRIN

REACTIONS (8)
  - Nervousness [Unknown]
  - Dental care [Unknown]
  - Mental disorder [Unknown]
  - Hyperventilation [Unknown]
  - Abdominal pain upper [Unknown]
  - Panic attack [Unknown]
  - Anxiety [Unknown]
  - Drug dose omission [Unknown]
